FAERS Safety Report 13485053 (Version 2)
Quarter: 2017Q2

REPORT INFORMATION
  Report Type: Spontaneous
  Country: CN (occurrence: CN)
  Receive Date: 20170425
  Receipt Date: 20170512
  Transmission Date: 20170830
  Serious: Yes (Other)
  Sender: FDA-Public Use
  Company Number: CN-SUN PHARMACEUTICAL INDUSTRIES LTD-2017RR-139016

PATIENT
  Age: 68 Year
  Sex: Male

DRUGS (15)
  1. DEXAMETHASONE. [Suspect]
     Active Substance: DEXAMETHASONE
     Indication: LUNG ADENOCARCINOMA
     Dosage: 4 CYCLES, 20 MG, DAYS 1, 2, 4, 5, 8, 9, 11, AND 12 FROM START OF TREATMENT
     Route: 065
     Dates: start: 201304
  2. DEXAMETHASONE. [Suspect]
     Active Substance: DEXAMETHASONE
     Dosage: 10 MG, DAYS 1-4 FROM START OF TREATMENT
     Route: 065
     Dates: start: 201408
  3. VANCOMYCIN [Concomitant]
     Active Substance: VANCOMYCIN
     Indication: STAPHYLOCOCCAL INFECTION
     Route: 065
  4. LENALIDOMIDE [Suspect]
     Active Substance: LENALIDOMIDE
     Indication: PLASMA CELL MYELOMA
     Dosage: 10 MG, DAILY, DAYS 1-28 FROM START OF TREATMENT
     Dates: start: 201311
  5. GEMCITABINE [Suspect]
     Active Substance: GEMCITABINE\GEMCITABINE HYDROCHLORIDE
     Indication: LUNG NEOPLASM MALIGNANT
     Dosage: 1 G/M2, ON DAYS 1 AND 8 FROM START OF TREATMENT
     Route: 065
     Dates: start: 201408
  6. CISPLATIN. [Suspect]
     Active Substance: CISPLATIN
     Dosage: 4 CYCLES, 20 MG/M2, ON DAYS 1-4 FROM START OF TREATMENT
     Route: 065
     Dates: start: 201511
  7. BORTEZOMIB [Suspect]
     Active Substance: BORTEZOMIB
     Indication: PLASMA CELL MYELOMA
     Dosage: 4 CYCLES, 1 MG/M2, ON DAYS 1,4, 8, AND 11 FROM START OF TREATMENT
     Route: 065
     Dates: start: 201304
  8. BORTEZOMIB [Suspect]
     Active Substance: BORTEZOMIB
     Indication: LUNG ADENOCARCINOMA
  9. LENALIDOMIDE [Suspect]
     Active Substance: LENALIDOMIDE
     Indication: LUNG ADENOCARCINOMA
  10. CISPLATIN. [Suspect]
     Active Substance: CISPLATIN
     Indication: LUNG NEOPLASM MALIGNANT
     Dosage: 20 MG/M2, ON DAYS 1-4 FROM START OF TREATMENT
     Route: 065
     Dates: start: 201408
  11. CYCLOPHOSPHAMIDE. [Suspect]
     Active Substance: CYCLOPHOSPHAMIDE
     Indication: PLASMA CELL MYELOMA
     Dosage: 200 MG/M2, DAYS 1-5
     Route: 065
  12. CYCLOPHOSPHAMIDE. [Suspect]
     Active Substance: CYCLOPHOSPHAMIDE
     Indication: LUNG ADENOCARCINOMA
  13. DEXAMETHASONE. [Suspect]
     Active Substance: DEXAMETHASONE
     Dosage: 10 MG, UNK
     Route: 065
  14. DEXAMETHASONE. [Suspect]
     Active Substance: DEXAMETHASONE
     Indication: PLASMA CELL MYELOMA
     Dosage: 10 MG, DAYS 1-5
     Route: 065
  15. VINORELBINE [Suspect]
     Active Substance: VINORELBINE\VINORELBINE TARTRATE
     Indication: LUNG NEOPLASM MALIGNANT
     Dosage: 4 CYCLES, 25 MG/M2, ON DAYS 1 AND 8 FROM START OF TREATMENT
     Route: 065
     Dates: start: 201511

REACTIONS (5)
  - Neuropathy peripheral [Unknown]
  - Lung carcinoma cell type unspecified recurrent [Recovering/Resolving]
  - Pleural effusion [Recovering/Resolving]
  - Drug effect incomplete [Unknown]
  - Pneumonia [Unknown]

NARRATIVE: CASE EVENT DATE: 201408
